APPROVED DRUG PRODUCT: ACTONEL WITH CALCIUM (COPACKAGED)
Active Ingredient: CALCIUM CARBONATE; RISEDRONATE SODIUM
Strength: EQ 500MG BASE;35MG **Federal Register determination that product was not discontinued or withdrawn for safety or effectiveness reasons**
Dosage Form/Route: TABLET;ORAL
Application: N021823 | Product #001
Applicant: WARNER CHILCOTT CO LLC
Approved: Aug 12, 2005 | RLD: Yes | RS: No | Type: DISCN